FAERS Safety Report 14546461 (Version 1)
Quarter: 2018Q1

REPORT INFORMATION
  Report Type: Spontaneous
  Country: IT (occurrence: IT)
  Receive Date: 20180219
  Receipt Date: 20180219
  Transmission Date: 20180509
  Serious: Yes (Other)
  Sender: FDA-Public Use
  Company Number: PHHY2018IT023291

PATIENT
  Sex: Male

DRUGS (4)
  1. DELTACORTENE [Suspect]
     Active Substance: PREDNISONE
     Indication: HEART TRANSPLANT
     Dosage: 5 MG, QD
     Route: 065
     Dates: start: 19960410
  2. MYFENAX [Concomitant]
     Active Substance: MYCOPHENOLATE MOFETIL
     Indication: HEART TRANSPLANT
     Dosage: 1 DF, BID (ONE IN THE MORNING AND ONE IN THE EVENING)
     Route: 065
  3. SANDIMMUN NEORAL [Suspect]
     Active Substance: CYCLOSPORINE
     Indication: HEART TRANSPLANT
     Dosage: 125 MG, (75 MG IN THE MORNING AND 50 MG IN THE EVENING)
     Route: 065
     Dates: start: 19960410
  4. AZATHIOPRINE. [Suspect]
     Active Substance: AZATHIOPRINE
     Indication: HEART TRANSPLANT
     Dosage: 0.5 DF, QOD
     Route: 065

REACTIONS (1)
  - Renal failure [Unknown]
